FAERS Safety Report 7536885-X (Version None)
Quarter: 2011Q2

REPORT INFORMATION
  Report Type: 
  Country: None (occurrence: None)
  Receive Date: 20110609
  Receipt Date: 20110531
  Transmission Date: 20111010
  Serious: Yes (Hospitalization)
  Sender: FDA-Public Use
  Company Number: US-ELI_LILLY_AND_COMPANY-US200809001169

PATIENT
  Sex: Female
  Weight: 113.38 kg

DRUGS (3)
  1. BYETTA [Suspect]
     Indication: TYPE 2 DIABETES MELLITUS
     Dosage: 5 UG, 2/D
     Route: 058
     Dates: start: 20070801, end: 20071201
  2. METFORMIN HYDROCHLORIDE [Concomitant]
     Indication: TYPE 2 DIABETES MELLITUS
     Dosage: 500 MG, 2/D
     Route: 048
     Dates: start: 19970101
  3. DIURETICS [Concomitant]

REACTIONS (14)
  - VOMITING [None]
  - RETCHING [None]
  - FEELING COLD [None]
  - GENERALISED OEDEMA [None]
  - ASTHENIA [None]
  - BLOOD PRESSURE INCREASED [None]
  - NAUSEA [None]
  - GAIT DISTURBANCE [None]
  - ABDOMINAL PAIN UPPER [None]
  - CEREBROVASCULAR ACCIDENT [None]
  - CARDIAC FAILURE CONGESTIVE [None]
  - TREMOR [None]
  - PANCREATIC INJURY [None]
  - RENAL INJURY [None]
